FAERS Safety Report 5464875-X (Version None)
Quarter: 2007Q3

REPORT INFORMATION
  Report Type: 
  Country: None (occurrence: None)
  Receive Date: 20070921
  Receipt Date: 20070911
  Transmission Date: 20080115
  Serious: Yes (Other)
  Sender: FDA-Public Use
  Company Number: US-PFIZER INC-2007076384

PATIENT
  Sex: Male
  Weight: 86.363 kg

DRUGS (3)
  1. LIPITOR [Suspect]
     Indication: BLOOD CHOLESTEROL
     Dates: start: 20070101, end: 20070911
  2. TRICOR [Suspect]
     Indication: BLOOD TRIGLYCERIDES INCREASED
     Dates: start: 20070101, end: 20070911
  3. VITAMINS [Concomitant]

REACTIONS (3)
  - BLOOD TRIGLYCERIDES INCREASED [None]
  - MYALGIA [None]
  - POLYURIA [None]
